FAERS Safety Report 7087017-6 (Version None)
Quarter: 2010Q4

REPORT INFORMATION
  Report Type: 
  Country: None (occurrence: None)
  Receive Date: 20101106
  Receipt Date: 20101007
  Transmission Date: 20110411
  Serious: No
  Sender: FDA-Public Use
  Company Number: US-WYE-H18075110

PATIENT
  Age: 50 Year
  Sex: Female

DRUGS (2)
  1. ADVIL COLD AND SINUS [Suspect]
     Indication: SINUSITIS
     Dosage: 1 CAPLET DAILY AT BEDTIME
     Route: 048
     Dates: start: 20101005
  2. ADVIL COLD AND SINUS [Suspect]
     Indication: SINUS DISORDER

REACTIONS (1)
  - INSOMNIA [None]
